FAERS Safety Report 12931282 (Version 1)
Quarter: 2016Q4

REPORT INFORMATION
  Report Type: Report from Study
  Country: None (occurrence: US)
  Receive Date: 20161110
  Receipt Date: 20161110
  Transmission Date: 20170207
  Serious: Yes (Other)
  Sender: FDA-Public Use
  Company Number: US-ABBVIE-16P-163-1776162-00

PATIENT
  Sex: Female

DRUGS (1)
  1. LUPRON DEPOT [Suspect]
     Active Substance: LEUPROLIDE ACETATE
     Indication: PRODUCT USED FOR UNKNOWN INDICATION
     Route: 050

REACTIONS (8)
  - Endometriosis [Unknown]
  - Cyst [Unknown]
  - Oophorectomy [Unknown]
  - Pelvic congestion [Unknown]
  - Pain [Unknown]
  - Menorrhagia [Unknown]
  - Hysterectomy [Unknown]
  - Drug ineffective [Unknown]
